FAERS Safety Report 20635383 (Version 1)
Quarter: 2022Q1

REPORT INFORMATION
  Report Type: Report from Study
  Country: US (occurrence: US)
  Receive Date: 20220325
  Receipt Date: 20220325
  Transmission Date: 20220423
  Serious: Yes (Other)
  Sender: FDA-Public Use
  Company Number: US-KOREA IPSEN Pharma-2022-08126

PATIENT
  Age: 64 Year
  Sex: Female

DRUGS (1)
  1. SOMATULINE DEPOT [Suspect]
     Active Substance: LANREOTIDE ACETATE
     Indication: Carcinoid tumour of the small bowel
     Dosage: 120MG/0.5 ML
     Route: 058
     Dates: start: 202011

REACTIONS (6)
  - Neoplasm progression [Unknown]
  - Blood glucose fluctuation [Recovering/Resolving]
  - Weight increased [Recovering/Resolving]
  - Migraine [Recovering/Resolving]
  - Pain [Recovering/Resolving]
  - Blood glucose decreased [Recovering/Resolving]

NARRATIVE: CASE EVENT DATE: 20211201
